FAERS Safety Report 12505016 (Version 1)
Quarter: 2016Q2

REPORT INFORMATION
  Report Type: Spontaneous
  Country: US (occurrence: US)
  Receive Date: 20160628
  Receipt Date: 20160628
  Transmission Date: 20160815
  Serious: Yes (Hospitalization)
  Sender: FDA-Public Use
  Company Number: US-BAYER-2016-119594

PATIENT
  Sex: Female
  Weight: 83.9 kg

DRUGS (2)
  1. ALEVE [Suspect]
     Active Substance: NAPROXEN SODIUM
     Indication: BACK PAIN
     Dosage: 1 DF, QD
     Dates: start: 20160228, end: 20160302
  2. ALEVE [Suspect]
     Active Substance: NAPROXEN SODIUM
     Indication: BACK PAIN
     Dosage: UNK
     Dates: start: 20160228, end: 20160305

REACTIONS (3)
  - Haemorrhage [Recovered/Resolved]
  - Haemorrhage [None]
  - Joint stiffness [Recovered/Resolved]

NARRATIVE: CASE EVENT DATE: 20160301
